FAERS Safety Report 4480956-1 (Version None)
Quarter: 2004Q4

REPORT INFORMATION
  Report Type: 
  Country: None (occurrence: None)
  Receive Date: 20041020
  Receipt Date: 20041020
  Transmission Date: 20050328
  Serious: Yes (Other)
  Sender: FDA-Public Use
  Company Number: None

PATIENT
  Sex: Male

DRUGS (2)
  1. DOCETAXEL AVENTIS [Suspect]
     Indication: NON-SMALL CELL LUNG CANCER
     Dosage: 20 MG WEEKLY IV
     Route: 042
     Dates: start: 20041012, end: 20041012
  2. CARBOPLATIN [Suspect]
     Indication: NON-SMALL CELL LUNG CANCER
     Dosage: AUC 3 WEEKLY IV
     Route: 042
     Dates: start: 20041012, end: 20041012

REACTIONS (1)
  - MEDICATION ERROR [None]
